FAERS Safety Report 13329165 (Version 1)
Quarter: 2017Q1

REPORT INFORMATION
  Report Type: Spontaneous
  Country: US (occurrence: None)
  Receive Date: 20170313
  Receipt Date: 20170313
  Transmission Date: 20170428
  Serious: Yes (Hospitalization)
  Sender: FDA-Public Use
  Company Number: US-BRAINTREE LABORATORIES-170140

PATIENT
  Age: 3 Year
  Sex: Male
  Weight: 17 kg

DRUGS (1)
  1. GOLYTELY [Suspect]
     Active Substance: POLYETHYLENE GLYCOL 3350\POTASSIUM CHLORIDE\SODIUM BICARBONATE\SODIUM CHLORIDE\SODIUM SULFATE ANHYDROUS
     Indication: OFF LABEL USE
     Dosage: UNK
     Route: 050

REACTIONS (8)
  - Pneumonia aspiration [None]
  - Blood potassium decreased [None]
  - Depressed level of consciousness [None]
  - Abdominal distension [None]
  - Acute respiratory distress syndrome [None]
  - Pulmonary oedema [None]
  - Haemodynamic instability [None]
  - Generalised tonic-clonic seizure [None]
